FAERS Safety Report 10601919 (Version 1)
Quarter: 2014Q4

REPORT INFORMATION
  Report Type: Spontaneous
  Country: RO (occurrence: RO)
  Receive Date: 20141124
  Receipt Date: 20141124
  Transmission Date: 20150529
  Serious: Yes (Hospitalization)
  Sender: FDA-Public Use
  Company Number: RO-ABBVIE-14P-135-1310745-00

PATIENT
  Age: 64 Year
  Sex: Female

DRUGS (1)
  1. DUODOPA [Suspect]
     Active Substance: CARBIDOPA\LEVODOPA
     Indication: PARKINSON^S DISEASE
     Dosage: MD 6, 5 ML?CR 6, 3 ML? ED 2 ML
     Route: 050
     Dates: start: 20141104

REACTIONS (2)
  - Pyrexia [Recovering/Resolving]
  - Clostridium test positive [Unknown]

NARRATIVE: CASE EVENT DATE: 201411
